FAERS Safety Report 9399275 (Version 2)
Quarter: 2013Q3

REPORT INFORMATION
  Report Type: Report from Study
  Country: GB (occurrence: GB)
  Receive Date: 20130715
  Receipt Date: 20130722
  Transmission Date: 20140515
  Serious: Yes (Death, Other)
  Sender: FDA-Public Use
  Company Number: GB-ROCHE-1142136

PATIENT
  Sex: 0

DRUGS (1)
  1. DACLIZUMAB (HYPM) [Suspect]
     Indication: MULTIPLE SCLEROSIS
     Dosage: 150 MG OR 300 MG
     Route: 058

REACTIONS (19)
  - Psoas abscess [Fatal]
  - Rash [Recovering/Resolving]
  - Infection [Unknown]
  - Alanine aminotransferase increased [Recovered/Resolved]
  - Aspartate aminotransferase increased [Recovered/Resolved]
  - Cytomegalovirus infection [Unknown]
  - Hepatitis B [Unknown]
  - Cervix carcinoma [Unknown]
  - Malignant melanoma [Unknown]
  - Dermatitis atopic [Unknown]
  - Dermatitis allergic [Unknown]
  - Dermatitis exfoliative [Unknown]
  - Erythema nodosum [Unknown]
  - Multiple sclerosis relapse [Unknown]
  - Autoimmune thyroiditis [Unknown]
  - Crohn^s disease [Unknown]
  - Hypersensitivity [Unknown]
  - Lymphadenopathy [Unknown]
  - Herpes zoster [Unknown]
